FAERS Safety Report 11294440 (Version 1)
Quarter: 2015Q3

REPORT INFORMATION
  Report Type: Spontaneous
  Country: US (occurrence: US)
  Receive Date: 20150722
  Receipt Date: 20150722
  Transmission Date: 20151125
  Serious: No
  Sender: FDA-Public Use
  Company Number: US-ELI_LILLY_AND_COMPANY-US200805002556

PATIENT
  Age: 66 Year
  Sex: Female

DRUGS (4)
  1. EVISTA [Suspect]
     Active Substance: RALOXIFENE HYDROCHLORIDE
     Indication: OSTEOPOROSIS
     Dosage: 60 MG, UNK
     Dates: start: 20080408, end: 20080510
  2. BABY ASPIRIN [Concomitant]
     Active Substance: ASPIRIN
     Dosage: 81 MG, DAILY (1/D)
  3. EVISTA [Suspect]
     Active Substance: RALOXIFENE HYDROCHLORIDE
     Dosage: 60 MG, UNK
     Dates: start: 20080522, end: 20080616
  4. EVISTA [Suspect]
     Active Substance: RALOXIFENE HYDROCHLORIDE
     Dosage: 60 MG, UNK
     Dates: start: 20080623, end: 2008

REACTIONS (4)
  - Asthenia [Recovering/Resolving]
  - Thirst [Recovering/Resolving]
  - Malaise [Recovering/Resolving]
  - Skin warm [Recovering/Resolving]
